FAERS Safety Report 9810792 (Version 3)
Quarter: 2015Q3

REPORT INFORMATION
  Report Type: Spontaneous
  Country: US (occurrence: US)
  Receive Date: 20140110
  Receipt Date: 20150720
  Transmission Date: 20151125
  Serious: Yes (Death, Other)
  Sender: FDA-Public Use
  Company Number: US-SANOFI-AVENTIS-2013SA082977

PATIENT
  Age: 48 Year
  Sex: Male

DRUGS (5)
  1. PLAVIX [Suspect]
     Active Substance: CLOPIDOGREL BISULFATE
     Indication: ULCER HAEMORRHAGE
     Route: 048
     Dates: start: 2000, end: 20070518
  2. PLAVIX [Suspect]
     Active Substance: CLOPIDOGREL BISULFATE
     Indication: DIABETES MELLITUS
     Route: 048
     Dates: start: 2000, end: 20070518
  3. ASPIRIN. [Concomitant]
     Active Substance: ASPIRIN
     Dosage: OCCASIONALLY
     Dates: start: 2000, end: 2007
  4. AVANDIA [Concomitant]
     Active Substance: ROSIGLITAZONE MALEATE
  5. ASPIRIN. [Concomitant]
     Active Substance: ASPIRIN
     Dosage: OCCASIONALLY

REACTIONS (6)
  - Death [Fatal]
  - Cerebrovascular accident [Unknown]
  - Product use issue [Unknown]
  - Multiple injuries [Unknown]
  - Anaemia [Unknown]
  - Haemorrhage [Unknown]

NARRATIVE: CASE EVENT DATE: 2000
